FAERS Safety Report 6461961-2 (Version None)
Quarter: 2009Q4

REPORT INFORMATION
  Report Type: 
  Country: None (occurrence: None)
  Receive Date: 20091130
  Receipt Date: 20091123
  Transmission Date: 20100525
  Serious: Yes (Other)
  Sender: FDA-Public Use
  Company Number: DE-ROCHE-670525

PATIENT

DRUGS (5)
  1. MYCOPHENOLATE MOFETIL [Suspect]
     Indication: GRAFT VERSUS HOST DISEASE
     Route: 065
  2. MYCOPHENOLATE MOFETIL [Suspect]
     Dosage: DOSE TAPERED
     Route: 065
  3. CYCLOSPORINE [Suspect]
     Indication: GRAFT VERSUS HOST DISEASE
     Route: 065
  4. CYCLOSPORINE [Suspect]
     Route: 065
  5. CYCLOSPORINE [Suspect]
     Dosage: DOSE TAPERED
     Route: 065

REACTIONS (1)
  - BRONCHOPULMONARY ASPERGILLOSIS [None]
